FAERS Safety Report 9107564 (Version 1)
Quarter: 2013Q1

REPORT INFORMATION
  Report Type: Spontaneous
  Country: JP (occurrence: JP)
  Receive Date: 20130221
  Receipt Date: 20130221
  Transmission Date: 20140127
  Serious: Yes (Other)
  Sender: FDA-Public Use
  Company Number: PHHY2013JP015566

PATIENT
  Age: 58 Year
  Sex: Female

DRUGS (5)
  1. OLANZAPINE [Suspect]
     Indication: MANIA
     Dosage: 10 MG
  2. LITHIUM CARBONATE [Concomitant]
     Indication: BIPOLAR DISORDER
     Dosage: 600 MG/ DAY
  3. BROTIZOLAM [Concomitant]
     Indication: BIPOLAR DISORDER
     Dosage: 0.25 MG/ DAY
  4. QUETIAPINE FUMARATE [Concomitant]
     Indication: BIPOLAR DISORDER
     Dosage: 50 MG/ DAY
  5. SERTRALINE HYDROCHLORIDE [Concomitant]
     Dosage: 75 MG/ DAY

REACTIONS (9)
  - Drug eruption [Unknown]
  - C-reactive protein increased [Unknown]
  - Drug hypersensitivity [Unknown]
  - Oedema peripheral [Unknown]
  - Erythema [Unknown]
  - Weight increased [Unknown]
  - Eosinophilia [Unknown]
  - Hepatic function abnormal [Unknown]
  - Angioedema [Unknown]
